FAERS Safety Report 5240411-8 (Version None)
Quarter: 2007Q1

REPORT INFORMATION
  Report Type: 
  Country: None (occurrence: None)
  Receive Date: 20070219
  Receipt Date: 20070205
  Transmission Date: 20070707
  Serious: Yes (Hospitalization, Other)
  Sender: FDA-Public Use
  Company Number: PHNU2006DE03851

PATIENT
  Age: 53 Year
  Sex: Male

DRUGS (5)
  1. CLOZAPINE [Suspect]
     Indication: SCHIZOPHRENIA
     Dosage: UP TO 250 MG/DAY
     Route: 048
     Dates: start: 20020101
  2. PIPAMPERONE [Suspect]
     Indication: SCHIZOPHRENIA
     Dosage: 480 MG/DAY
     Route: 048
  3. VALPROIC ACID [Suspect]
     Indication: SCHIZOPHRENIA
     Dosage: 2000 MG/DAY
     Route: 048
     Dates: start: 20020101
  4. CHLORPROTHIXENE [Suspect]
     Indication: SCHIZOPHRENIA
     Dosage: 50 MG/DAY
     Route: 048
     Dates: start: 19970101
  5. PROTHIPENDYL [Suspect]
     Indication: SLEEP DISORDER
     Dosage: 40 MG/DAY
     Route: 048
     Dates: start: 19970101

REACTIONS (4)
  - ATELECTASIS [None]
  - PLEURAL EFFUSION [None]
  - PLEURAL FIBROSIS [None]
  - PLEURISY [None]
